FAERS Safety Report 4877194-7 (Version None)
Quarter: 2005Q4

REPORT INFORMATION
  Report Type: 
  Country: None (occurrence: None)
  Receive Date: 20051206
  Receipt Date: 20051018
  Transmission Date: 20060501
  Serious: No
  Sender: FDA-Public Use
  Company Number: USA0510109692

PATIENT
  Age: 34 Year
  Sex: Female
  Weight: 58.9676 kg

DRUGS (3)
  1. CYMBALTA [Suspect]
     Indication: BACK PAIN
     Dosage: 90 MG DAY
     Dates: start: 20050513, end: 20050901
  2. DURAGESIC-100 [Concomitant]
  3. THYROID TAB [Concomitant]

REACTIONS (6)
  - AGGRESSION [None]
  - CRYING [None]
  - FATIGUE [None]
  - MANIA [None]
  - MENTAL RETARDATION SEVERITY UNSPECIFIED [None]
  - MOTOR DYSFUNCTION [None]
